FAERS Safety Report 11107105 (Version 1)
Quarter: 2015Q2

REPORT INFORMATION
  Report Type: Spontaneous
  Country: CN (occurrence: CN)
  Receive Date: 20150512
  Receipt Date: 20150512
  Transmission Date: 20150821
  Serious: Yes (Life-Threatening, Hospitalization)
  Sender: FDA-Public Use
  Company Number: CN-ACTAVIS-2015-09654

PATIENT
  Age: 38 Year
  Sex: Female

DRUGS (10)
  1. METHOTREXATE (METHOTREXATE SODIUM) [Suspect]
     Active Substance: METHOTREXATE SODIUM
     Indication: ERYTHRODERMIC PSORIASIS
  2. METHYLPREDNISOLONE (UNKNOWN) [Suspect]
     Active Substance: METHYLPREDNISOLONE
     Indication: ERYTHRODERMIC PSORIASIS
     Dosage: UNK
     Route: 065
  3. ACITRETIN (UNKNOWN) [Suspect]
     Active Substance: ACITRETIN
     Indication: PUSTULAR PSORIASIS
  4. ACITRETIN (UNKNOWN) [Suspect]
     Active Substance: ACITRETIN
     Indication: ERYTHRODERMIC PSORIASIS
     Dosage: UNK
     Route: 065
  5. CYCLOSPORINE (UNKNOWN) [Suspect]
     Active Substance: CYCLOSPORINE
     Indication: PUSTULAR PSORIASIS
     Dosage: UNK
     Route: 065
  6. MYCOPHENOLATE MOFETIL (UNKNOWN) [Suspect]
     Active Substance: MYCOPHENOLATE MOFETIL
     Indication: PUSTULAR PSORIASIS
  7. CYCLOSPORINE (UNKNOWN) [Suspect]
     Active Substance: CYCLOSPORINE
     Indication: ERYTHRODERMIC PSORIASIS
  8. MYCOPHENOLATE MOFETIL (UNKNOWN) [Suspect]
     Active Substance: MYCOPHENOLATE MOFETIL
     Indication: ERYTHRODERMIC PSORIASIS
     Dosage: UNK
     Route: 065
  9. METHOTREXATE (METHOTREXATE SODIUM) [Suspect]
     Active Substance: METHOTREXATE SODIUM
     Indication: PUSTULAR PSORIASIS
     Dosage: UNK
     Route: 065
  10. METHYLPREDNISOLONE (UNKNOWN) [Suspect]
     Active Substance: METHYLPREDNISOLONE
     Indication: PUSTULAR PSORIASIS

REACTIONS (6)
  - Disseminated intravascular coagulation [Recovered/Resolved]
  - Respiratory failure [Recovered/Resolved]
  - Lung infection [Recovered/Resolved]
  - Acinetobacter infection [Recovered/Resolved]
  - Candida sepsis [Recovered/Resolved]
  - Skin infection [Recovered/Resolved]

NARRATIVE: CASE EVENT DATE: 201308
